FAERS Safety Report 13012001 (Version 2)
Quarter: 2016Q4

REPORT INFORMATION
  Report Type: Spontaneous
  Country: TR (occurrence: TR)
  Receive Date: 20161209
  Receipt Date: 20161215
  Transmission Date: 20170207
  Serious: Yes (Hospitalization)
  Sender: FDA-Public Use
  Company Number: TR-TAKEDA-2016MPI004153

PATIENT
  Age: 78 Year
  Sex: Female
  Weight: 55 kg

DRUGS (12)
  1. MELPHALAN [Suspect]
     Active Substance: MELPHALAN
     Indication: PLASMA CELL MYELOMA
     Dosage: 14 MG, UNK
     Route: 048
     Dates: start: 20160420, end: 20160423
  2. VELCADE [Suspect]
     Active Substance: BORTEZOMIB
     Dosage: 1.95 MG, UNK
     Route: 058
     Dates: start: 20160902, end: 20161019
  3. DARATUMUMAB [Suspect]
     Active Substance: DARATUMUMAB
     Indication: PLASMA CELL MYELOMA
     Dosage: 896 MG, 1/WEEK
     Route: 042
     Dates: start: 20160420, end: 20160428
  4. PREDNISONE. [Suspect]
     Active Substance: PREDNISONE
     Dosage: 90 MG, UNK
     Route: 048
     Dates: start: 20160716, end: 20160905
  5. VELCADE [Suspect]
     Active Substance: BORTEZOMIB
     Indication: PLASMA CELL MYELOMA
     Dosage: 1.95 MG, 2/WEEK
     Route: 058
     Dates: start: 20160420, end: 20160428
  6. MELPHALAN [Suspect]
     Active Substance: MELPHALAN
     Dosage: 10 MG, UNK
     Route: 048
     Dates: start: 20160715, end: 20160718
  7. ACETYLSALICYLIC ACID [Concomitant]
     Active Substance: ASPIRIN
     Indication: HYPERTENSION
     Dosage: 100 MG, QD
     Route: 048
     Dates: start: 20160210
  8. VELCADE [Suspect]
     Active Substance: BORTEZOMIB
     Dosage: 1.95 MG, UNK
     Route: 058
     Dates: start: 20160715, end: 20160722
  9. PREDNISONE. [Suspect]
     Active Substance: PREDNISONE
     Indication: PLASMA CELL MYELOMA
     Dosage: 92 MG, UNK
     Route: 048
     Dates: start: 20160420, end: 20160423
  10. PREDNISONE. [Suspect]
     Active Substance: PREDNISONE
     Dosage: 92 MG, UNK
     Route: 048
     Dates: start: 20161013, end: 20161015
  11. LOSARTAN POTASSIUM/HYDROCHLOROTHIAZIDE [Concomitant]
     Active Substance: HYDROCHLOROTHIAZIDE\LOSARTAN POTASSIUM
     Indication: HYPERTENSION
     Dosage: 100 MG, QD
     Route: 048
     Dates: start: 1996
  12. MELPHALAN [Suspect]
     Active Substance: MELPHALAN
     Dosage: 6.75 MG, UNK
     Route: 048
     Dates: start: 20160902, end: 20160905

REACTIONS (1)
  - Neutropenia [Recovered/Resolved]

NARRATIVE: CASE EVENT DATE: 20160504
